FAERS Safety Report 13624390 (Version 2)
Quarter: 2017Q3

REPORT INFORMATION
  Report Type: Report from Study
  Country: CA (occurrence: CA)
  Receive Date: 20170608
  Receipt Date: 20170717
  Transmission Date: 20171127
  Serious: Yes (Hospitalization, Other)
  Sender: FDA-Public Use
  Company Number: CA-AMGEN-CANSL2017085554

PATIENT
  Age: 56 Year
  Sex: Female
  Weight: 62 kg

DRUGS (5)
  1. ENBREL [Suspect]
     Active Substance: ETANERCEPT
     Indication: RHEUMATOID ARTHRITIS
     Dosage: 50 MG, UNK
     Route: 065
     Dates: start: 20130318, end: 2016
  2. METFORMIN [Concomitant]
     Active Substance: METFORMIN HYDROCHLORIDE
     Dosage: UNK
  3. SALVENT [Concomitant]
     Active Substance: ALBUTEROL
     Dosage: UNK
  4. MVI [Concomitant]
     Active Substance: VITAMINS
     Dosage: UNK
  5. ENBREL [Suspect]
     Active Substance: ETANERCEPT
     Dosage: 50 MG, UNK
     Route: 065
     Dates: start: 201611

REACTIONS (12)
  - Cholelithiasis [Unknown]
  - Joint arthroplasty [Unknown]
  - Tendon rupture [Recovered/Resolved]
  - Drug dose omission [Unknown]
  - Mobility decreased [Unknown]
  - Impaired healing [Unknown]
  - Muscle rupture [Recovered/Resolved]
  - Hand deformity [Unknown]
  - Lower limb fracture [Unknown]
  - Limb operation [Unknown]
  - Fall [Recovered/Resolved]
  - Musculoskeletal disorder [Unknown]

NARRATIVE: CASE EVENT DATE: 2016
